FAERS Safety Report 7069733-5 (Version None)
Quarter: 2010Q4

REPORT INFORMATION
  Report Type: 
  Country: None (occurrence: None)
  Receive Date: 20101028
  Receipt Date: 20100505
  Transmission Date: 20110411
  Serious: No
  Sender: FDA-Public Use
  Company Number: US-WYE-H14973010

PATIENT
  Sex: Female
  Weight: 86.26 kg

DRUGS (3)
  1. EFFEXOR [Suspect]
     Indication: POST-TRAUMATIC STRESS DISORDER
     Dosage: TOOK FLUCTUATING DOSES OF 37.5 MG/DAY, 75 MG/DAY AND MAX DOSE OF 212 MG/DAY, SHE DOSED HERSELF
     Dates: start: 20080101, end: 20091001
  2. GABAPENTIN [Concomitant]
  3. LORAZEPAM [Concomitant]

REACTIONS (1)
  - DRUG WITHDRAWAL SYNDROME [None]
